FAERS Safety Report 10314859 (Version 2)
Quarter: 2014Q4

REPORT INFORMATION
  Report Type: Spontaneous
  Country: JP (occurrence: JP)
  Receive Date: 20140718
  Receipt Date: 20141121
  Transmission Date: 20150528
  Serious: Yes (Other)
  Sender: FDA-Public Use
  Company Number: PHHY2012JP132225

PATIENT
  Age: 55 Year
  Sex: Female

DRUGS (16)
  1. GLIVEC [Suspect]
     Active Substance: IMATINIB MESYLATE
     Dosage: 200 MG, UNK
     Route: 048
  2. GLIVEC [Suspect]
     Active Substance: IMATINIB MESYLATE
     Dosage: 200 MG/DAY
     Route: 048
     Dates: start: 200511
  3. GLIVEC [Suspect]
     Active Substance: IMATINIB MESYLATE
     Dosage: 100 MG 4C, UKN,
     Route: 048
     Dates: start: 20040827
  4. SPRYCEL [Suspect]
     Active Substance: DASATINIB
     Dosage: 100 MG, UNK
     Route: 065
  5. GLIVEC [Suspect]
     Active Substance: IMATINIB MESYLATE
     Indication: CHRONIC MYELOID LEUKAEMIA
     Dosage: 400 MG, UNK
     Route: 048
     Dates: start: 20040803
  6. GLIVEC [Suspect]
     Active Substance: IMATINIB MESYLATE
     Dosage: 300 MG/DAY
     Route: 048
     Dates: start: 201111
  7. HIDREA [Suspect]
     Active Substance: HYDROXYUREA
     Dosage: 4 DF, 4 C
     Route: 065
     Dates: end: 201008
  8. GLIVEC [Suspect]
     Active Substance: IMATINIB MESYLATE
     Dosage: 400 MG, UNK
     Route: 048
     Dates: start: 200911
  9. GLIVEC [Suspect]
     Active Substance: IMATINIB MESYLATE
     Dosage: 140 MG, UNK
     Route: 048
     Dates: start: 20101228, end: 201103
  10. GLIVEC [Suspect]
     Active Substance: IMATINIB MESYLATE
     Dosage: 400 MG, UNK
     Route: 048
     Dates: start: 201112
  11. HIDREA [Suspect]
     Active Substance: HYDROXYUREA
     Indication: PRODUCT USED FOR UNKNOWN INDICATION
     Dosage: 500 MG 2C, UNK
     Route: 065
     Dates: end: 201008
  12. GLIVEC [Suspect]
     Active Substance: IMATINIB MESYLATE
     Dosage: 200 MG, UNK
     Route: 048
  13. SPRYCEL [Suspect]
     Active Substance: DASATINIB
     Indication: PRODUCT USED FOR UNKNOWN INDICATION
     Dosage: 140 MG, UNK
     Route: 065
  14. GLIVEC [Suspect]
     Active Substance: IMATINIB MESYLATE
     Dosage: 300 MG, UNK
     Route: 048
     Dates: start: 200802
  15. TASIGNA [Suspect]
     Active Substance: NILOTINIB
     Indication: CHRONIC MYELOID LEUKAEMIA
     Dosage: 800 MG, UNK
     Route: 065
  16. LASIX [Concomitant]
     Active Substance: FUROSEMIDE
     Dosage: 20 MG 1T/1X, UNK
     Dates: start: 20040827

REACTIONS (11)
  - Diarrhoea [Recovering/Resolving]
  - Pancytopenia [Recovering/Resolving]
  - Neutropenia [Recovered/Resolved]
  - Drug ineffective [Recovered/Resolved]
  - Conjunctival haemorrhage [Recovered/Resolved]
  - Anaemia [Recovered/Resolved]
  - Fluid retention [Recovered/Resolved]
  - Rash [Unknown]
  - Malignant neoplasm progression [Recovering/Resolving]
  - Platelet count decreased [Recovered/Resolved]
  - Blast crisis in myelogenous leukaemia [Recovering/Resolving]

NARRATIVE: CASE EVENT DATE: 200409
